FAERS Safety Report 7581685-8 (Version None)
Quarter: 2011Q2

REPORT INFORMATION
  Report Type: 
  Country: None (occurrence: None)
  Receive Date: 20110629
  Receipt Date: 20110615
  Transmission Date: 20111010
  Serious: Yes (Other)
  Sender: FDA-Public Use
  Company Number: US-BAYER-2011-052060

PATIENT
  Sex: Male

DRUGS (2)
  1. CIPROFLOXACIN HCL [Suspect]
     Indication: KLEBSIELLA INFECTION
  2. HERBAL PREPARATION [Concomitant]
     Indication: LIVER DISORDER
     Dosage: UNK
     Dates: start: 19960101

REACTIONS (4)
  - HEPATIC FAILURE [None]
  - MALAISE [None]
  - HEPATIC NEOPLASM MALIGNANT [None]
  - ABDOMINAL DISTENSION [None]
